FAERS Safety Report 4304197-3 (Version None)
Quarter: 2004Q1

REPORT INFORMATION
  Report Type: 
  Country: None (occurrence: None)
  Receive Date: 20040223
  Receipt Date: 20040213
  Transmission Date: 20041129
  Serious: Yes (Other)
  Sender: FDA-Public Use
  Company Number: HQWYE864709FEB04

PATIENT
  Age: 68 Year
  Sex: Female

DRUGS (9)
  1. EFFEXOR XR [Suspect]
     Indication: DEPRESSION
     Dosage: SEE IMAGE
     Route: 048
     Dates: start: 20020901
  2. EFFEXOR XR [Suspect]
     Indication: SOMATIC DELUSION
     Dosage: SEE IMAGE
     Route: 048
     Dates: start: 20020901
  3. ALCOHOL (ETHANOL,) [Suspect]
     Dosage: ORAL
     Route: 048
  4. EFFEXOR [Suspect]
     Indication: DEPRESSION
     Dosage: 37.5 MG ORAL
     Route: 048
  5. EFFEXOR [Suspect]
     Indication: SOMATIC DELUSION
     Dosage: 37.5 MG ORAL
     Route: 048
  6. REMERON [Suspect]
     Indication: DEPRESSION
     Dosage: 15-45 MG DAILY
     Dates: start: 20020601, end: 20040101
  7. REMERON [Suspect]
     Indication: SOMATIC DELUSION
     Dosage: 15-45 MG DAILY
     Dates: start: 20020601, end: 20040101
  8. PLENDIL [Concomitant]
  9. METOPROLOL SUCCINATE [Concomitant]

REACTIONS (9)
  - ASTHENIA [None]
  - CEREBELLAR SYNDROME [None]
  - CHILLS [None]
  - EXTRAPYRAMIDAL DISORDER [None]
  - HYPERREFLEXIA [None]
  - MASKED FACIES [None]
  - PARKINSON'S DISEASE [None]
  - TARDIVE DYSKINESIA [None]
  - TREMOR [None]
